FAERS Safety Report 4427698-6 (Version None)
Quarter: 2004Q3

REPORT INFORMATION
  Report Type: 
  Country: None (occurrence: None)
  Receive Date: 20040817
  Receipt Date: 20040722
  Transmission Date: 20050211
  Serious: Yes (Hospitalization)
  Sender: FDA-Public Use
  Company Number: US-ROCHE-375350

PATIENT
  Sex: Male

DRUGS (2)
  1. FUZEON [Suspect]
     Indication: DRUG USE FOR UNKNOWN INDICATION
     Route: 065
     Dates: start: 20040606
  2. FUZEON [Suspect]
     Route: 065
     Dates: end: 20040802

REACTIONS (6)
  - INJECTION SITE DISCOMFORT [None]
  - INJECTION SITE PAIN [None]
  - INJECTION SITE REACTION [None]
  - NEPHROLITHIASIS [None]
  - TREATMENT NONCOMPLIANCE [None]
  - ULCER [None]
